FAERS Safety Report 7864975-0 (Version None)
Quarter: 2011Q4

REPORT INFORMATION
  Report Type: 
  Country: None (occurrence: None)
  Receive Date: 20111028
  Receipt Date: 20111026
  Transmission Date: 20120403
  Serious: No
  Sender: FDA-Public Use
  Company Number: US-BAYER-2011-104435

PATIENT
  Age: 59 Year
  Sex: Female

DRUGS (1)
  1. NEXAVAR [Suspect]
     Indication: HEPATIC NEOPLASM MALIGNANT
     Dosage: UNK

REACTIONS (3)
  - PRURITUS [None]
  - ABDOMINAL PAIN UPPER [None]
  - EPISTAXIS [None]
